FAERS Safety Report 18740135 (Version 1)
Quarter: 2021Q1

REPORT INFORMATION
  Report Type: Spontaneous
  Country: JP (occurrence: JP)
  Receive Date: 20210114
  Receipt Date: 20210114
  Transmission Date: 20210419
  Serious: Yes (Hospitalization)
  Sender: FDA-Public Use
  Company Number: JP-PFIZER INC-2021021814

PATIENT
  Age: 61 Year
  Sex: Female
  Weight: 50 kg

DRUGS (4)
  1. NELFINAVIR MESILATE [Suspect]
     Active Substance: NELFINAVIR MESYLATE
     Indication: COVID-19
     Dosage: 750 MG, 3X/DAY (750 MG/8 HOURS)
     Route: 048
     Dates: start: 20201224, end: 20201229
  2. LOPERAMIDE [Concomitant]
     Active Substance: LOPERAMIDE
     Indication: COVID-19
     Dosage: 1 MG
     Route: 048
     Dates: start: 20201224, end: 20201231
  3. MEDICON [DEXTROMETHORPHAN HYDROBROMIDE] [Concomitant]
     Active Substance: DEXTROMETHORPHAN HYDROBROMIDE
     Indication: COVID-19
     Dosage: 15 MG, 3X/DAY
     Route: 048
     Dates: start: 20201221, end: 20210104
  4. CALONAL [Concomitant]
     Active Substance: ACETAMINOPHEN
     Indication: COVID-19
     Dosage: 500 MG
     Route: 048
     Dates: start: 20201221, end: 20201229

REACTIONS (5)
  - Off label use [Unknown]
  - Diarrhoea [Recovered/Resolved]
  - Nausea [Recovering/Resolving]
  - Decreased appetite [Recovering/Resolving]
  - Eating disorder [Recovering/Resolving]

NARRATIVE: CASE EVENT DATE: 20201224
